FAERS Safety Report 21791942 (Version 1)
Quarter: 2022Q4

REPORT INFORMATION
  Report Type: Spontaneous
  Country: JP (occurrence: JP)
  Receive Date: 20221229
  Receipt Date: 20221229
  Transmission Date: 20230113
  Serious: Yes (Hospitalization)
  Sender: FDA-Public Use
  Company Number: JP-MTPC-MTPC2022-0034846

PATIENT
  Age: 78 Year
  Sex: Male

DRUGS (5)
  1. EDARAVONE [Suspect]
     Active Substance: EDARAVONE
     Indication: Angiopathy
     Route: 065
  2. NOVASTAN [Suspect]
     Active Substance: ARGATROBAN
     Indication: Angiopathy
     Route: 042
  3. ASPIRIN [Concomitant]
     Active Substance: ASPIRIN
     Indication: Angiopathy
     Dosage: 200 MILLIGRAM
     Route: 048
  4. CLOPIDOGREL [Concomitant]
     Active Substance: CLOPIDOGREL BISULFATE
     Indication: Angiopathy
     Dosage: 300 MILLIGRAM
     Route: 065
  5. LOW MOLECULAR DEXTRAN L [Concomitant]
     Indication: Angiopathy
     Route: 065

REACTIONS (6)
  - Embolism [Unknown]
  - Peripheral arterial occlusive disease [Unknown]
  - Cerebral haemorrhage [Recovering/Resolving]
  - Subarachnoid haemorrhage [Recovering/Resolving]
  - Atrial fibrillation [Unknown]
  - Embolic stroke [Unknown]
